FAERS Safety Report 18218844 (Version 2)
Quarter: 2020Q3

REPORT INFORMATION
  Report Type: Spontaneous
  Country: AU (occurrence: AU)
  Receive Date: 20200901
  Receipt Date: 20200907
  Transmission Date: 20201103
  Serious: Yes (Hospitalization, Other)
  Sender: FDA-Public Use
  Company Number: NVSC2020AU239118

PATIENT
  Sex: Female

DRUGS (1)
  1. APO?DOXYCYCLINE [Suspect]
     Active Substance: DOXYCYCLINE
     Indication: RESPIRATORY TRACT INFECTION
     Dosage: 100 MG, BID
     Route: 065
     Dates: start: 20200701

REACTIONS (15)
  - Abnormal behaviour [Unknown]
  - Drug clearance decreased [Unknown]
  - Vascular dementia [Unknown]
  - Malaise [Unknown]
  - Gait disturbance [Unknown]
  - Dysphagia [Unknown]
  - Hot flush [Unknown]
  - Constipation [Unknown]
  - Agitation [Unknown]
  - Sputum discoloured [Unknown]
  - Tremor [Unknown]
  - Confusional state [Unknown]
  - Dysarthria [Unknown]
  - Diarrhoea [Unknown]
  - Dizziness [Unknown]
